FAERS Safety Report 23184389 (Version 1)
Quarter: 2023Q4

REPORT INFORMATION
  Report Type: Report from Study
  Country: US (occurrence: US)
  Receive Date: 20231115
  Receipt Date: 20231115
  Transmission Date: 20240109
  Serious: Yes (Hospitalization)
  Sender: FDA-Public Use
  Company Number: US-TAKEDA-2022TUS073228

PATIENT
  Sex: Male
  Weight: 113 kg

DRUGS (7)
  1. LANADELUMAB [Suspect]
     Active Substance: LANADELUMAB
     Indication: Complement deficiency disease
     Dosage: 300 MILLIGRAM, Q2WEEKS
     Route: 058
     Dates: start: 20220829
  2. LANADELUMAB [Suspect]
     Active Substance: LANADELUMAB
     Dosage: 300 MILLIGRAM, Q4WEEKS
     Route: 058
  3. PRIMATENE MIST [Concomitant]
     Active Substance: EPINEPHRINE
     Dosage: UNK
     Route: 065
  4. PRIMATENE ASTHMA [Concomitant]
     Dosage: UNK
     Route: 065
  5. ICATIBANT [Concomitant]
     Active Substance: ICATIBANT ACETATE
     Dosage: UNK
     Route: 065
  6. DIETARY SUPPLEMENT\HERBALS\MILK THISTLE [Concomitant]
     Active Substance: MILK THISTLE
  7. MUPIROCIN [Concomitant]
     Active Substance: MUPIROCIN

REACTIONS (5)
  - Carpal tunnel decompression [Unknown]
  - Nasal disorder [Unknown]
  - Infusion site pain [Unknown]
  - Injection site pain [Unknown]
  - Incorrect drug administration rate [Unknown]
